FAERS Safety Report 4295923-0 (Version None)
Quarter: 2004Q1

REPORT INFORMATION
  Report Type: 
  Country: None (occurrence: None)
  Receive Date: 20040210
  Receipt Date: 20040105
  Transmission Date: 20041129
  Serious: Yes (Hospitalization)
  Sender: FDA-Public Use
  Company Number: M2004.6719

PATIENT
  Age: 63 Year
  Sex: Female
  Weight: 78.9259 kg

DRUGS (3)
  1. LORATADINE [Suspect]
     Indication: HYPERSENSITIVITY
     Dosage: 1 TABLET DAILY
  2. PROZAC [Concomitant]
  3. PREMPRO [Concomitant]

REACTIONS (1)
  - PALPITATIONS [None]
